FAERS Safety Report 7940106-3 (Version None)
Quarter: 2011Q4

REPORT INFORMATION
  Report Type: 
  Country: None (occurrence: None)
  Receive Date: 20111125
  Receipt Date: 20111027
  Transmission Date: 20120403
  Serious: Yes (Other)
  Sender: FDA-Public Use
  Company Number: PHHY2011JP95207

PATIENT
  Age: 11 Year
  Sex: Female

DRUGS (2)
  1. TEGRETOL [Suspect]
     Indication: EPILEPSY
     Dosage: 100 MG, UNK
     Route: 048
  2. DEPAKENE [Concomitant]
     Dosage: UNK UKN, UNK
     Route: 048

REACTIONS (3)
  - ATRIOVENTRICULAR BLOCK FIRST DEGREE [None]
  - HYPOACUSIS [None]
  - FATIGUE [None]
